FAERS Safety Report 4970565-X (Version None)
Quarter: 2006Q2

REPORT INFORMATION
  Report Type: 
  Country: None (occurrence: None)
  Receive Date: 20060412
  Receipt Date: 20051004
  Transmission Date: 20061013
  Serious: Yes (Hospitalization, Other)
  Sender: FDA-Public Use
  Company Number: US-MERCK-0510USA03535

PATIENT
  Age: 47 Year
  Sex: Female
  Weight: 77 kg

DRUGS (3)
  1. VIOXX [Suspect]
     Indication: ARTHRALGIA
     Route: 048
     Dates: start: 20000101, end: 20030101
  2. VIOXX [Suspect]
     Indication: BACK PAIN
     Route: 048
     Dates: start: 20000101, end: 20030101
  3. ASPIRIN [Concomitant]
     Route: 065

REACTIONS (12)
  - BRADYCARDIA [None]
  - CARDIOVASCULAR DISORDER [None]
  - CHEST PAIN [None]
  - COLONIC POLYP [None]
  - EMBOLISM [None]
  - ESSENTIAL HYPERTENSION [None]
  - INFARCTION [None]
  - INTESTINAL POLYP [None]
  - MYOCARDIAL INFARCTION [None]
  - OBSTRUCTIVE AIRWAYS DISORDER [None]
  - OCCULT BLOOD POSITIVE [None]
  - THROMBOSIS [None]
